FAERS Safety Report 8587104-7 (Version None)
Quarter: 2012Q3

REPORT INFORMATION
  Report Type: 
  Country: None (occurrence: None)
  Receive Date: 20120810
  Receipt Date: 20120803
  Transmission Date: 20120928
  Serious: Yes (Hospitalization)
  Sender: FDA-Public Use
  Company Number: CA-VERTEX PHARMACEUTICALS INC.-AE-2012-011495

PATIENT
  Age: 53 Year
  Sex: Female
  Weight: 36.32 kg

DRUGS (4)
  1. RIBAVIRIN [Concomitant]
     Indication: HEPATITIS C
     Dates: start: 20120531
  2. RIBAVIRIN [Concomitant]
     Route: 048
     Dates: start: 20120628
  3. INCIVEK [Suspect]
     Indication: HEPATITIS C
     Route: 048
     Dates: start: 20120531
  4. PEGASYS [Concomitant]
     Indication: HEPATITIS C
     Dates: start: 20120531

REACTIONS (3)
  - PYREXIA [None]
  - ESCHERICHIA SEPSIS [None]
  - ANAEMIA [None]
